FAERS Safety Report 5547889-0 (Version None)
Quarter: 2007Q4

REPORT INFORMATION
  Report Type: 
  Country: None (occurrence: None)
  Receive Date: 20071128
  Receipt Date: 20070326
  Transmission Date: 20080405
  Serious: Yes (Other)
  Sender: FDA-Public Use
  Company Number: 2007025270

PATIENT
  Age: 36 Year
  Sex: Male
  Weight: 74.8 kg

DRUGS (2)
  1. LIPITOR [Suspect]
     Indication: BLOOD CHOLESTEROL INCREASED
     Dosage: 80 MG (80 MG, 1 IN 1 D)
     Dates: start: 20020101
  2. ATRIPLA (EFAVIRENZ, EMTRICITABINE, TENOFOVIR DISOPROXIL FUMARATE) [Concomitant]

REACTIONS (1)
  - EYE SWELLING [None]
